FAERS Safety Report 17285695 (Version 1)
Quarter: 2020Q1

REPORT INFORMATION
  Report Type: Spontaneous
  Country: US (occurrence: US)
  Receive Date: 20200118
  Receipt Date: 20200118
  Transmission Date: 20200409
  Serious: No
  Sender: FDA-Public Use
  Company Number: US-UNITED THERAPEUTICS-UNT-2020-000674

PATIENT
  Age: 30 Year
  Sex: Female
  Weight: 80.73 kg

DRUGS (3)
  1. REMODULIN [Suspect]
     Active Substance: TREPROSTINIL
     Indication: PULMONARY ARTERIAL HYPERTENSION
     Dosage: 0.074 ?G/KG, CONTINUING
     Route: 041
     Dates: start: 20160623
  2. EPOPROSTENOL TEVA [Suspect]
     Active Substance: EPOPROSTENOL SODIUM
     Indication: PRODUCT USED FOR UNKNOWN INDICATION
     Route: 065
  3. ADCIRCA [Concomitant]
     Active Substance: TADALAFIL
     Indication: PULMONARY ARTERIAL HYPERTENSION
     Route: 065

REACTIONS (4)
  - Catheter site pain [Unknown]
  - Purulent discharge [Unknown]
  - Catheter site haemorrhage [Unknown]
  - Catheter site discharge [Unknown]

NARRATIVE: CASE EVENT DATE: 202001
